FAERS Safety Report 11102692 (Version 2)
Quarter: 2015Q2

REPORT INFORMATION
  Report Type: Spontaneous
  Country: US (occurrence: US)
  Receive Date: 20150511
  Receipt Date: 20150617
  Transmission Date: 20150821
  Serious: No
  Sender: FDA-Public Use
  Company Number: US-009507513-1505USA001083

PATIENT
  Sex: Female

DRUGS (1)
  1. JANUMET [Suspect]
     Active Substance: METFORMIN HYDROCHLORIDE\SITAGLIPTIN PHOSPHATE
     Dosage: STRENGTH: 50/500 (UNIT UNSPECIFIED), PATIENT WAS ADMINSTERED JANUMET CRUSHED
     Route: 048

REACTIONS (2)
  - Dysphagia [Unknown]
  - Wrong technique in drug usage process [Unknown]
